FAERS Safety Report 21324312 (Version 2)
Quarter: 2022Q3

REPORT INFORMATION
  Report Type: Spontaneous
  Country: SE (occurrence: SE)
  Receive Date: 20220912
  Receipt Date: 20220921
  Transmission Date: 20221026
  Serious: Yes (Death, Life-Threatening, Hospitalization)
  Sender: FDA-Public Use
  Company Number: SE-TEVA-2022-SE-2072263

PATIENT
  Age: 16 Year
  Sex: Female

DRUGS (20)
  1. RISPERIDONE [Suspect]
     Active Substance: RISPERIDONE
     Indication: Anxiety
     Dosage: INITIATED AT THE AGE OF 9.5 YEARS
     Route: 065
  2. RISPERIDONE [Suspect]
     Active Substance: RISPERIDONE
     Indication: Hereditary disorder
  3. RISPERIDONE [Suspect]
     Active Substance: RISPERIDONE
     Indication: Neurodegenerative disorder
  4. SERTRALINE [Suspect]
     Active Substance: SERTRALINE HYDROCHLORIDE
     Indication: Anxiety
     Dosage: 25 MILLIGRAM DAILY; INITIATED AT THE AGE OF 16.5 YEARS
     Route: 065
  5. SERTRALINE [Suspect]
     Active Substance: SERTRALINE HYDROCHLORIDE
     Indication: Neurodegenerative disorder
  6. SERTRALINE [Suspect]
     Active Substance: SERTRALINE HYDROCHLORIDE
     Indication: Hereditary disorder
  7. OLANZAPINE [Suspect]
     Active Substance: OLANZAPINE
     Indication: Anxiety
     Route: 065
  8. OLANZAPINE [Suspect]
     Active Substance: OLANZAPINE
     Indication: Neurodegenerative disorder
  9. OLANZAPINE [Suspect]
     Active Substance: OLANZAPINE
     Indication: Hereditary disorder
  10. TRIMEPRAZINE [Suspect]
     Active Substance: TRIMEPRAZINE
     Indication: Agitation
     Dosage: 60 MILLIGRAM DAILY;
     Route: 065
  11. TRIMEPRAZINE [Suspect]
     Active Substance: TRIMEPRAZINE
     Indication: Hereditary disorder
  12. TRIMEPRAZINE [Suspect]
     Active Substance: TRIMEPRAZINE
     Indication: Neurodegenerative disorder
  13. LEVETIRACETAM [Concomitant]
     Active Substance: LEVETIRACETAM
     Indication: Epilepsy
     Dosage: INITIATED AT THE AGE OF 7.5 YEARS
     Route: 065
  14. LEVETIRACETAM [Concomitant]
     Active Substance: LEVETIRACETAM
     Indication: Hereditary disorder
  15. LEVETIRACETAM [Concomitant]
     Active Substance: LEVETIRACETAM
     Indication: Neurodegenerative disorder
  16. MELATONIN [Concomitant]
     Active Substance: MELATONIN
     Indication: Neurodegenerative disorder
     Dosage: INITIATED AT THE AGE OF 9 YEARS
     Route: 065
  17. MELATONIN [Concomitant]
     Active Substance: MELATONIN
     Indication: Hereditary disorder
  18. CLONAZEPAM [Concomitant]
     Active Substance: CLONAZEPAM
     Indication: Epilepsy
     Dosage: INITIATED AT THE AGE OF 9.5 YEARS
     Route: 065
  19. CLONAZEPAM [Concomitant]
     Active Substance: CLONAZEPAM
     Indication: Hereditary disorder
  20. CLONAZEPAM [Concomitant]
     Active Substance: CLONAZEPAM
     Indication: Neurodegenerative disorder

REACTIONS (3)
  - Hyperthermia [Fatal]
  - Rhabdomyolysis [Fatal]
  - Serotonin syndrome [Fatal]
